FAERS Safety Report 7547443-5 (Version None)
Quarter: 2011Q2

REPORT INFORMATION
  Report Type: 
  Country: None (occurrence: None)
  Receive Date: 20110614
  Receipt Date: 20110606
  Transmission Date: 20111010
  Serious: Yes (Other)
  Sender: FDA-Public Use
  Company Number: DE-B.I. PHARMACEUTICALS,INC./RIDGEFIELD-2011-DE-03446DE

PATIENT
  Sex: Female

DRUGS (1)
  1. PRAMIPEXOLE DIHYCHLLORIDE [Suspect]
     Dosage: UNKNOWN AMOUNT
     Route: 048

REACTIONS (3)
  - HYPERKINESIA [None]
  - DRUG ADMINISTRATION ERROR [None]
  - RESTLESSNESS [None]
